FAERS Safety Report 4955786-4 (Version None)
Quarter: 2006Q1

REPORT INFORMATION
  Report Type: 
  Country: None (occurrence: None)
  Receive Date: 20060127
  Receipt Date: 20050209
  Transmission Date: 20060701
  Serious: Yes (Hospitalization)
  Sender: FDA-Public Use
  Company Number: 05-02-0186

PATIENT
  Sex: Male

DRUGS (4)
  1. CLOZAPINE [Suspect]
     Indication: SCHIZOPHRENIA, PARANOID TYPE
     Dosage: 500 MG HS, ORAL
     Route: 048
     Dates: start: 20030501, end: 20040401
  2. PROTONIX [Concomitant]
  3. RISPERDAL [Concomitant]
  4. ZOLOFT [Concomitant]

REACTIONS (1)
  - DRUG INEFFECTIVE [None]
